FAERS Safety Report 18889200 (Version 7)
Quarter: 2021Q4

REPORT INFORMATION
  Report Type: Spontaneous
  Country: JP (occurrence: JP)
  Receive Date: 20210212
  Receipt Date: 20211011
  Transmission Date: 20220303
  Serious: Yes (Hospitalization, Other)
  Sender: FDA-Public Use
  Company Number: JP-TAKEDA-2020TJP008281

PATIENT
  Age: 61 Year
  Sex: Male
  Weight: 80.4 kg

DRUGS (15)
  1. VECTIBIX [Suspect]
     Active Substance: PANITUMUMAB
     Indication: Rectal cancer
     Dosage: 480 MILLIGRAM, Q2WEEKS
     Route: 042
     Dates: start: 20191030, end: 20210112
  2. VECTIBIX [Suspect]
     Active Substance: PANITUMUMAB
     Dosage: 480 MILLIGRAM, Q3WEEKS
     Route: 041
     Dates: start: 20210202, end: 20210413
  3. OXALIPLATIN [Suspect]
     Active Substance: OXALIPLATIN
     Indication: Product used for unknown indication
     Dosage: 140 MILLIGRAM, Q2WEEKS
     Route: 042
     Dates: start: 20191030, end: 20210112
  4. FLUOROURACIL [Suspect]
     Active Substance: FLUOROURACIL
     Indication: Product used for unknown indication
     Dosage: 750 MILLIGRAM, Q2WEEKS
     Route: 042
     Dates: start: 20191030, end: 20210112
  5. FLUOROURACIL [Suspect]
     Active Substance: FLUOROURACIL
     Dosage: 4500 MILLIGRAM, Q2WEEKS
     Route: 042
     Dates: start: 20191030, end: 20210114
  6. FLUOROURACIL [Suspect]
     Active Substance: FLUOROURACIL
     Dosage: 700 MILLIGRAM, Q3WEEKS
     Route: 042
     Dates: start: 20210202, end: 20210413
  7. FLUOROURACIL [Suspect]
     Active Substance: FLUOROURACIL
     Dosage: 4000 MILLIGRAM, Q3WEEKS
     Route: 042
     Dates: start: 20210202, end: 20210415
  8. FLUOROURACIL [Suspect]
     Active Substance: FLUOROURACIL
     Dosage: UNK
     Route: 042
     Dates: start: 20210525, end: 20210713
  9. LEVOLEUCOVORIN CALCIUM [Suspect]
     Active Substance: LEVOLEUCOVORIN CALCIUM
     Indication: Product used for unknown indication
     Dosage: 380 MILLIGRAM, Q2WEEKS
     Route: 042
     Dates: start: 20191030, end: 20210112
  10. LEVOLEUCOVORIN CALCIUM [Suspect]
     Active Substance: LEVOLEUCOVORIN CALCIUM
     Dosage: 320 MILLIGRAM, Q3WEEKS
     Route: 042
     Dates: start: 20210202, end: 20210413
  11. LEVOLEUCOVORIN CALCIUM [Suspect]
     Active Substance: LEVOLEUCOVORIN CALCIUM
     Dosage: UNK
     Route: 042
     Dates: start: 20210525, end: 20210713
  12. IRINOTECAN HYDROCHLORIDE [Suspect]
     Active Substance: IRINOTECAN HYDROCHLORIDE
     Indication: Product used for unknown indication
     Dosage: 280 MILLIGRAM, Q3WEEKS
     Route: 042
     Dates: start: 20210202, end: 20210413
  13. IRINOTECAN HYDROCHLORIDE [Suspect]
     Active Substance: IRINOTECAN HYDROCHLORIDE
     Indication: Product used for unknown indication
     Dosage: UNK
     Route: 042
     Dates: start: 20210525, end: 20210713
  14. GLYCOSAMINOGLYCANS [Concomitant]
     Active Substance: GLYCOSAMINOGLYCANS
     Dosage: UNK
     Route: 065
  15. LOCOID [Concomitant]
     Active Substance: HYDROCORTISONE BUTYRATE
     Dosage: UNK
     Route: 065

REACTIONS (9)
  - Haematuria [Recovering/Resolving]
  - Renal impairment [Recovering/Resolving]
  - Metastases to urinary tract [Not Recovered/Not Resolved]
  - Rectal cancer [Not Recovered/Not Resolved]
  - Disease progression [Not Recovered/Not Resolved]
  - Metastases to bladder [Not Recovered/Not Resolved]
  - Metastases to liver [Not Recovered/Not Resolved]
  - Disease progression [Not Recovered/Not Resolved]
  - Paronychia [Not Recovered/Not Resolved]

NARRATIVE: CASE EVENT DATE: 20201224
